FAERS Safety Report 24627407 (Version 1)
Quarter: 2024Q4

REPORT INFORMATION
  Report Type: Spontaneous
  Country: IT (occurrence: IT)
  Receive Date: 20241116
  Receipt Date: 20241116
  Transmission Date: 20250115
  Serious: Yes (Other)
  Sender: SANOFI AVENTIS
  Company Number: None

PATIENT
  Age: 87 Year
  Sex: Male

DRUGS (1)
  1. GLYBURIDE [Suspect]
     Active Substance: GLYBURIDE
     Indication: Type 2 diabetes mellitus
     Dosage: 1 DF, QD
     Route: 048
     Dates: start: 20240101, end: 20240611

REACTIONS (1)
  - Hypoglycaemic seizure [Recovering/Resolving]

NARRATIVE: CASE EVENT DATE: 20240611
